FAERS Safety Report 4733847-2 (Version None)
Quarter: 2005Q3

REPORT INFORMATION
  Report Type: 
  Country: None (occurrence: None)
  Receive Date: 20050803
  Receipt Date: 20050309
  Transmission Date: 20060218
  Serious: Yes (Hospitalization, Other)
  Sender: FDA-Public Use
  Company Number: US-MERCK-0503USA01981

PATIENT
  Age: 51 Year
  Sex: Male
  Weight: 207 kg

DRUGS (21)
  1. ISOSORBIDE [Concomitant]
     Route: 065
  2. DIOVAN [Concomitant]
     Route: 065
  3. CEPHALEXIN [Concomitant]
     Route: 065
  4. LASIX [Concomitant]
     Route: 065
     Dates: start: 20001204
  5. ZOCOR [Concomitant]
     Route: 065
  6. AVAPRO [Concomitant]
     Route: 065
  7. ACETAMINOPHEN AND PROPOXYPHENE NAPSYLATE [Concomitant]
     Route: 065
  8. METHYLPREDNISOLONE [Concomitant]
     Route: 065
  9. AUGMENTIN '125' [Concomitant]
     Route: 065
  10. TRIAMTERENE [Concomitant]
     Route: 065
     Dates: start: 20001204
  11. ULTRAM [Concomitant]
     Route: 065
     Dates: start: 19931026
  12. LIPITOR [Concomitant]
     Route: 065
  13. METOPROLOL [Concomitant]
     Route: 065
  14. NITROSTAT [Concomitant]
     Route: 065
  15. PLAVIX [Concomitant]
     Route: 065
  16. FOLIC ACID [Concomitant]
     Route: 065
  17. ZOCOR [Concomitant]
     Route: 065
  18. XENICAL [Concomitant]
     Route: 065
  19. VIOXX [Suspect]
     Indication: OSTEOARTHRITIS
     Route: 048
     Dates: start: 20001228, end: 20030623
  20. NORVASC [Concomitant]
     Route: 065
     Dates: start: 19941202
  21. MAXZIDE [Concomitant]
     Route: 065

REACTIONS (10)
  - CARDIAC FAILURE CONGESTIVE [None]
  - CEREBROVASCULAR ACCIDENT [None]
  - CHEST PAIN [None]
  - DIABETES MELLITUS [None]
  - DYSPEPSIA [None]
  - FIBROMYALGIA [None]
  - MYOCARDIAL INFARCTION [None]
  - NECK PAIN [None]
  - POLYTRAUMATISM [None]
  - SLEEP APNOEA SYNDROME [None]
